FAERS Safety Report 5729018-3 (Version None)
Quarter: 2008Q2

REPORT INFORMATION
  Report Type: 
  Country: None (occurrence: None)
  Receive Date: 20080430
  Receipt Date: 20080416
  Transmission Date: 20081010
  Serious: Yes (Hospitalization)
  Sender: FDA-Public Use
  Company Number: DSU-2008-00572

PATIENT
  Age: 80 Year
  Sex: Male

DRUGS (8)
  1. COOLMETEC (HYDROCHLOROTHIAZIDE, OLMESARTAN MEDOXOMIL) (TABLET) (HYDROC [Suspect]
     Indication: DRUG USE FOR UNKNOWN INDICATION
     Dosage: (QD), PER ORAL
     Route: 048
     Dates: end: 20070925
  2. LYRICA [Suspect]
     Indication: DRUG USE FOR UNKNOWN INDICATION
     Dosage: PER ORAL
     Route: 048
     Dates: start: 20070901, end: 20070925
  3. TARKA [Suspect]
     Indication: DRUG USE FOR UNKNOWN INDICATION
     Dosage: (QD), PER ORAL
     Route: 048
     Dates: end: 20070925
  4. LOPRESSOR LP (METOPROLOL) [Concomitant]
  5. TENSTATEN (CICLETANINE) [Concomitant]
  6. AMLODIPINE BESYLATE [Concomitant]
  7. KARDEGIC (ACETYLSALICYLATE LYSINE) [Concomitant]
  8. PANTOPRAZOLE SODIUM [Concomitant]

REACTIONS (3)
  - BRADYCARDIA [None]
  - RENAL FAILURE [None]
  - RENAL HYPOPLASIA [None]
